FAERS Safety Report 7617819-6 (Version None)
Quarter: 2011Q3

REPORT INFORMATION
  Report Type: 
  Country: None (occurrence: None)
  Receive Date: 20110718
  Receipt Date: 20110711
  Transmission Date: 20111222
  Serious: Yes (Hospitalization)
  Sender: FDA-Public Use
  Company Number: SE-BAYER-2011-059610

PATIENT
  Age: 33 Year
  Sex: Female

DRUGS (3)
  1. VALPROATE SODIUM [Concomitant]
     Indication: EPILEPSY
  2. TEGRETOL [Concomitant]
     Indication: EPILEPSY
  3. MIRENA [Suspect]
     Indication: MENOMETRORRHAGIA
     Dosage: 20 ?G, CONT
     Route: 015
     Dates: start: 20101117, end: 20101213

REACTIONS (3)
  - MOOD ALTERED [None]
  - PETIT MAL EPILEPSY [None]
  - FLUID RETENTION [None]
